FAERS Safety Report 18274260 (Version 2)
Quarter: 2020Q3

REPORT INFORMATION
  Report Type: Spontaneous
  Country: CN (occurrence: CN)
  Receive Date: 20200916
  Receipt Date: 20200922
  Transmission Date: 20201103
  Serious: Yes (Death, Other)
  Sender: FDA-Public Use
  Company Number: CN-JNJFOC-20200905730

PATIENT
  Age: 85 Year
  Sex: Male

DRUGS (1)
  1. XARELTO [Suspect]
     Active Substance: RIVAROXABAN
     Indication: PRODUCT USED FOR UNKNOWN INDICATION
     Dosage: 10 MG, QD
     Route: 048
     Dates: start: 20191023, end: 20191028

REACTIONS (6)
  - Gastrointestinal haemorrhage [Fatal]
  - Cerebral haemorrhage [Fatal]
  - Contraindicated product prescribed [Unknown]
  - Labelled drug-disease interaction medication error [Unknown]
  - Haemorrhage urinary tract [Fatal]
  - Cyanosis [Not Recovered/Not Resolved]

NARRATIVE: CASE EVENT DATE: 20191023
